FAERS Safety Report 4396234-5 (Version None)
Quarter: 2004Q3

REPORT INFORMATION
  Report Type: 
  Country: None (occurrence: None)
  Receive Date: 20040713
  Receipt Date: 20040701
  Transmission Date: 20050211
  Serious: Yes (Hospitalization, Other)
  Sender: FDA-Public Use
  Company Number: FR-BRISTOL-MYERS SQUIBB COMPANY-12631099

PATIENT
  Age: 73 Year
  Sex: Female

DRUGS (7)
  1. COUMADIN [Suspect]
     Indication: ANTICOAGULANT THERAPY
     Dosage: START DATE UNKNOWN; 7 MG ALTERNATING WITH 8 MG
     Route: 048
  2. CORDARONE [Interacting]
     Indication: PULMONARY OEDEMA
     Dosage: UNSPECIFIED DAILY DOSE
     Route: 048
     Dates: start: 20040327, end: 20040512
  3. LASIX [Concomitant]
     Dosage: UNIT NOT PROVIDED
  4. DIGOXIN [Concomitant]
  5. PRAVASTATIN [Concomitant]
     Dosage: UNIT NOT PROVIDED
  6. LEVOTHYROXINE SODIUM [Concomitant]
     Dosage: UNIT NOT PROVIDED
  7. HUMALOG [Concomitant]

REACTIONS (5)
  - DRUG INTERACTION [None]
  - INTERNATIONAL NORMALISED RATIO ABNORMAL [None]
  - OVERDOSE [None]
  - PROTHROMBIN TIME RATIO ABNORMAL [None]
  - RENAL FAILURE [None]
